FAERS Safety Report 8986326 (Version 2)
Quarter: 2013Q1

REPORT INFORMATION
  Report Type: Spontaneous
  Country: JP (occurrence: JP)
  Receive Date: 20121226
  Receipt Date: 20130116
  Transmission Date: 20140127
  Serious: Yes (Other)
  Sender: FDA-Public Use
  Company Number: JP-ELI_LILLY_AND_COMPANY-JP201212005769

PATIENT
  Age: 88 Year
  Sex: Male
  Weight: 63.7 kg

DRUGS (1)
  1. GEMZAR [Suspect]
     Indication: PANCREATIC CARCINOMA
     Dosage: 1200 MG, WEEKLY (1/W)
     Route: 042
     Dates: start: 20090820, end: 2010

REACTIONS (1)
  - Hepatic angiosarcoma [Not Recovered/Not Resolved]
